FAERS Safety Report 21039210 (Version 2)
Quarter: 2022Q3

REPORT INFORMATION
  Report Type: Spontaneous
  Country: CA (occurrence: CA)
  Receive Date: 20220704
  Receipt Date: 20220721
  Transmission Date: 20221027
  Serious: Yes (Hospitalization)
  Sender: FDA-Public Use
  Company Number: CA-MICRO LABS LIMITED-ML2022-03110

PATIENT
  Age: 59 Year
  Sex: Male

DRUGS (2)
  1. RANOLAZINE [Suspect]
     Active Substance: RANOLAZINE
     Indication: Cardiac disorder
     Dosage: SINCE APPROX. MAY 20
     Route: 048
  2. RANOLAZINE [Suspect]
     Active Substance: RANOLAZINE
     Route: 048
     Dates: start: 20220617

REACTIONS (3)
  - Adverse event [Unknown]
  - Arthralgia [Not Recovered/Not Resolved]
  - Blood glucose decreased [Unknown]
